FAERS Safety Report 19587044 (Version 1)
Quarter: 2021Q3

REPORT INFORMATION
  Report Type: Spontaneous
  Country: US (occurrence: US)
  Receive Date: 20210720
  Receipt Date: 20210720
  Transmission Date: 20211014
  Serious: No
  Sender: FDA-Public Use
  Company Number: None

PATIENT
  Age: 70 Year
  Sex: Male
  Weight: 49.17 kg

DRUGS (2)
  1. LATANOPROST (LATANOPROST 0.005% SOLN, OPH) [Suspect]
     Active Substance: LATANOPROST
     Indication: GLAUCOMA
     Route: 031
     Dates: start: 20141125, end: 20141203
  2. DORZOLAMIDE (DORZOLAMIDE HCL 2% SOLN, OPH) [Suspect]
     Active Substance: DORZOLAMIDE HYDROCHLORIDE
     Indication: GLAUCOMA
     Route: 031
     Dates: start: 20150224, end: 20151202

REACTIONS (1)
  - Eye pruritus [None]
